FAERS Safety Report 15164428 (Version 1)
Quarter: 2018Q3

REPORT INFORMATION
  Report Type: Report from Study
  Country: None (occurrence: BE)
  Receive Date: 20180719
  Receipt Date: 20180719
  Transmission Date: 20181010
  Serious: Yes (Hospitalization)
  Sender: FDA-Public Use
  Company Number: BE-ABBVIE-18S-013-2421011-00

PATIENT
  Sex: Male

DRUGS (4)
  1. DUODOPA [Suspect]
     Active Substance: CARBIDOPA\LEVODOPA
     Dosage: MD:5ML; CD: 4ML/H FOR 16HRS; ED: 3ML
     Route: 050
     Dates: start: 20081210, end: 20081229
  2. DUODOPA [Suspect]
     Active Substance: CARBIDOPA\LEVODOPA
     Dosage: MD:1.2ML; CD: 3.1ML/H FOR 16HRS; ED: 0.8ML
     Route: 050
     Dates: start: 20170912
  3. DUODOPA [Suspect]
     Active Substance: CARBIDOPA\LEVODOPA
     Dosage: DOSES CONTINUOUSLY MONITORED AND ADAPTED
     Route: 050
     Dates: start: 20081229, end: 20170912
  4. DUODOPA [Suspect]
     Active Substance: CARBIDOPA\LEVODOPA
     Indication: PARKINSON^S DISEASE
     Dosage: NOT REPORTED
     Route: 050
     Dates: start: 20081208, end: 20081210

REACTIONS (1)
  - Musculoskeletal disorder [Unknown]
